FAERS Safety Report 17214285 (Version 1)
Quarter: 2019Q4

REPORT INFORMATION
  Report Type: Spontaneous
  Country: US (occurrence: US)
  Receive Date: 20191230
  Receipt Date: 20191230
  Transmission Date: 20200122
  Serious: No
  Sender: FDA-Public Use
  Company Number: US-AKRON, INC.-2078315

PATIENT
  Age: 87 Year
  Sex: Female

DRUGS (1)
  1. BETAMETHASONE DIPROPIONATE LOTION, USP 0.05% [Suspect]
     Active Substance: BETAMETHASONE DIPROPIONATE
     Indication: ALOPECIA
     Route: 061

REACTIONS (3)
  - Alopecia [Not Recovered/Not Resolved]
  - Drug ineffective [Recovered/Resolved]
  - Hair growth abnormal [Not Recovered/Not Resolved]
